FAERS Safety Report 10267758 (Version 1)
Quarter: 2014Q2

REPORT INFORMATION
  Report Type: Spontaneous
  Country: US (occurrence: None)
  Receive Date: 20140626
  Receipt Date: 20140626
  Transmission Date: 20141212
  Serious: Yes (Other)
  Sender: FDA-Public Use
  Company Number: None

PATIENT
  Age: 46 Year
  Sex: Female
  Weight: 46.72 kg

DRUGS (1)
  1. BENZOYL PEROXIDE [Suspect]
     Indication: ACNE

REACTIONS (4)
  - Application site erythema [None]
  - Rash erythematous [None]
  - Dry skin [None]
  - Drug hypersensitivity [None]
